FAERS Safety Report 11727669 (Version 1)
Quarter: 2015Q4

REPORT INFORMATION
  Report Type: Report from Study
  Country: HN (occurrence: HN)
  Receive Date: 20151112
  Receipt Date: 20151112
  Transmission Date: 20160304
  Serious: Yes (Hospitalization)
  Sender: FDA-Public Use
  Company Number: HN-ASTRAZENECA-2015SF09062

PATIENT
  Sex: Female

DRUGS (1)
  1. ATACAND PLUS [Suspect]
     Active Substance: CANDESARTAN CILEXETIL\HYDROCHLOROTHIAZIDE
     Dosage: 32MG + 12.5 MG ONCE DAILY
     Route: 048
     Dates: start: 20131112

REACTIONS (4)
  - Blood glucose increased [Unknown]
  - Myocardial infarction [Unknown]
  - Hypotension [Unknown]
  - Irritable bowel syndrome [Unknown]
